FAERS Safety Report 5941333-7 (Version None)
Quarter: 2008Q4

REPORT INFORMATION
  Report Type: 
  Country: None (occurrence: None)
  Receive Date: 20081103
  Receipt Date: 20081103
  Transmission Date: 20090506
  Serious: Yes (Hospitalization)
  Sender: FDA-Public Use
  Company Number: None

PATIENT
  Age: 19 Year
  Sex: Female
  Weight: 97.0698 kg

DRUGS (1)
  1. MIRENA [Suspect]
     Indication: CONTRACEPTION
     Dates: start: 20080702, end: 20081029

REACTIONS (16)
  - CHILLS [None]
  - CRYING [None]
  - DIZZINESS [None]
  - FATIGUE [None]
  - FEELING OF BODY TEMPERATURE CHANGE [None]
  - HAEMORRHAGE [None]
  - HORMONE LEVEL ABNORMAL [None]
  - HOT FLUSH [None]
  - IUCD COMPLICATION [None]
  - LIBIDO DECREASED [None]
  - MIGRAINE [None]
  - MOOD SWINGS [None]
  - MUSCLE SPASMS [None]
  - NAUSEA [None]
  - PAIN [None]
  - PALLOR [None]
